FAERS Safety Report 8094413-7 (Version None)
Quarter: 2012Q1

REPORT INFORMATION
  Report Type: 
  Country: None (occurrence: None)
  Receive Date: 20120130
  Receipt Date: 20120124
  Transmission Date: 20120608
  Serious: Yes (Other)
  Sender: FDA-Public Use
  Company Number: US-AMGEN-USASP2012005345

PATIENT
  Age: 8 Year
  Sex: Male

DRUGS (1)
  1. NEUPOGEN [Suspect]
     Dosage: UNK UNK, BID
     Route: 064
     Dates: start: 19890101, end: 19910101

REACTIONS (8)
  - CROHN'S DISEASE [None]
  - BIOPSY STOMACH ABNORMAL [None]
  - BIOPSY INTESTINE ABNORMAL [None]
  - IMMUNE SYSTEM DISORDER [None]
  - BIOPSY OESOPHAGUS ABNORMAL [None]
  - SCLERODERMA [None]
  - VOMITING [None]
  - NEONATAL ASPIRATION [None]
